FAERS Safety Report 12975140 (Version 1)
Quarter: 2016Q4

REPORT INFORMATION
  Report Type: Spontaneous
  Country: GB (occurrence: GB)
  Receive Date: 20161125
  Receipt Date: 20161125
  Transmission Date: 20170207
  Serious: Yes (Death)
  Sender: FDA-Public Use
  Company Number: GB-MALLINCKRODT-T201606044

PATIENT
  Age: 7 Year
  Sex: Male
  Weight: 20 kg

DRUGS (4)
  1. UVADEX [Suspect]
     Active Substance: METHOXSALEN
     Dosage: UNK
     Route: 057
     Dates: start: 20161015, end: 20161015
  2. UVADEX [Suspect]
     Active Substance: METHOXSALEN
     Indication: GRAFT VERSUS HOST DISEASE
     Dosage: UNK
     Route: 057
     Dates: start: 20161002, end: 20161002
  3. UVADEX [Suspect]
     Active Substance: METHOXSALEN
     Dosage: UNK
     Route: 057
     Dates: start: 201610, end: 201610
  4. UVADEX [Suspect]
     Active Substance: METHOXSALEN
     Dosage: UNK
     Route: 057
     Dates: start: 20161016, end: 20161016

REACTIONS (2)
  - Multiple organ dysfunction syndrome [Fatal]
  - Off label use [Unknown]

NARRATIVE: CASE EVENT DATE: 20161105
